FAERS Safety Report 9377309 (Version 2)
Quarter: 2013Q3

REPORT INFORMATION
  Report Type: Spontaneous
  Country: US (occurrence: US)
  Receive Date: 20130701
  Receipt Date: 20130805
  Transmission Date: 20140515
  Serious: Yes (Death)
  Sender: FDA-Public Use
  Company Number: US-BIOGENIDEC-2013BI056852

PATIENT
  Age: 66 Year
  Sex: Male

DRUGS (4)
  1. TYSABRI [Suspect]
     Indication: MULTIPLE SCLEROSIS
     Route: 042
     Dates: start: 20100809, end: 20120316
  2. BACLOFEN PUMP [Concomitant]
  3. GABAPENTIN [Concomitant]
  4. AMBIEN [Concomitant]

REACTIONS (2)
  - Decubitus ulcer [Unknown]
  - Death [Fatal]
